FAERS Safety Report 12590000 (Version 3)
Quarter: 2016Q4

REPORT INFORMATION
  Report Type: Spontaneous
  Country: AL (occurrence: AL)
  Receive Date: 20160725
  Receipt Date: 20161013
  Transmission Date: 20170207
  Serious: No
  Sender: FDA-Public Use
  Company Number: AL-PFIZER INC-2015073855

PATIENT
  Age: 18 Year
  Sex: Male
  Weight: 50 kg

DRUGS (1)
  1. ELELYSO [Suspect]
     Active Substance: TALIGLUCERASE ALFA
     Indication: GAUCHER^S DISEASE TYPE I
     Dosage: 60 IU/KG, CYCLIC, EVERY OTHER WEEK
     Route: 042
     Dates: start: 20141226

REACTIONS (5)
  - Sneezing [Recovered/Resolved]
  - Cough [Recovered/Resolved]
  - Abdominal pain [Recovered/Resolved]
  - Urticaria [Recovered/Resolved]
  - Erythema [Recovered/Resolved]

NARRATIVE: CASE EVENT DATE: 20141226
